FAERS Safety Report 14314993 (Version 3)
Quarter: 2018Q3

REPORT INFORMATION
  Report Type: Spontaneous
  Country: IT (occurrence: IT)
  Receive Date: 20171221
  Receipt Date: 20180821
  Transmission Date: 20181010
  Serious: Yes (Other)
  Sender: FDA-Public Use
  Company Number: IT-TEVA-2017-IT-838582

PATIENT
  Age: 46 Year
  Sex: Male

DRUGS (4)
  1. COLIMICINA [Concomitant]
     Active Substance: COLISTIN SULFATE
     Route: 042
  2. METHYLPREDNISOLONE. [Concomitant]
     Active Substance: METHYLPREDNISOLONE
     Route: 042
  3. CEFTAZIDIME. [Concomitant]
     Active Substance: CEFTAZIDIME
     Route: 042
  4. CIPROFLOXACIN. [Suspect]
     Active Substance: CIPROFLOXACIN
     Route: 041
     Dates: start: 20170916, end: 20170927

REACTIONS (1)
  - Venous thrombosis [Recovered/Resolved]

NARRATIVE: CASE EVENT DATE: 20170927
